FAERS Safety Report 9053273 (Version 2)
Quarter: 2013Q1

REPORT INFORMATION
  Report Type: Spontaneous
  Country: US (occurrence: US)
  Receive Date: 20130207
  Receipt Date: 20130213
  Transmission Date: 20140127
  Serious: No
  Sender: FDA-Public Use
  Company Number: US-009507513-1302USA003082

PATIENT
  Sex: Female
  Weight: 74.83 kg

DRUGS (2)
  1. MIRALAX [Suspect]
     Indication: CONSTIPATION
     Dosage: 8.5 G, QD
     Route: 048
  2. MIRALAX [Suspect]
     Indication: MEDICAL OBSERVATION
     Dosage: 17 G, UNKNOWN
     Route: 048
     Dates: start: 201207

REACTIONS (2)
  - Drug effect increased [Unknown]
  - Underdose [Unknown]
